FAERS Safety Report 6616397-8 (Version None)
Quarter: 2010Q1

REPORT INFORMATION
  Report Type: 
  Country: None (occurrence: None)
  Receive Date: 20100305
  Receipt Date: 20100223
  Transmission Date: 20100710
  Serious: Yes (Hospitalization)
  Sender: FDA-Public Use
  Company Number: JP-ABBOTT-09P-087-0580420-00

PATIENT
  Sex: Male

DRUGS (8)
  1. LUPRON DEPOT [Suspect]
     Indication: SPINAL MUSCULAR ATROPHY
     Route: 058
     Dates: start: 20071025
  2. DIOVAN [Concomitant]
     Indication: DRUG USE FOR UNKNOWN INDICATION
     Route: 048
     Dates: start: 20030801, end: 20090525
  3. DIOVAN [Concomitant]
     Dates: start: 20090526, end: 20090601
  4. LANDEL [Concomitant]
     Indication: DRUG USE FOR UNKNOWN INDICATION
     Route: 048
     Dates: start: 20060713
  5. METHYCOBAL [Concomitant]
     Indication: DRUG USE FOR UNKNOWN INDICATION
     Route: 048
     Dates: start: 20021201
  6. SENNA ALEXANDRINA [Concomitant]
     Indication: DRUG USE FOR UNKNOWN INDICATION
     Dosage: OPTIMAL DOSE
     Route: 048
     Dates: start: 20040301
  7. SMILE [Concomitant]
     Indication: XEROPHTHALMIA
     Dosage: OPTIMAL DOSE
     Route: 047
     Dates: start: 20040101
  8. SMILE [Concomitant]
     Indication: PROPHYLAXIS

REACTIONS (1)
  - INTERSTITIAL LUNG DISEASE [None]
